FAERS Safety Report 12061283 (Version 1)
Quarter: 2016Q1

REPORT INFORMATION
  Report Type: Spontaneous
  Country: CA (occurrence: CA)
  Receive Date: 20160210
  Receipt Date: 20160210
  Transmission Date: 20160526
  Serious: Yes (Other)
  Sender: FDA-Public Use
  Company Number: CA-TEVA-633121USA

PATIENT
  Sex: Female

DRUGS (1)
  1. PLAN B [Suspect]
     Active Substance: LEVONORGESTREL
     Indication: POST COITAL CONTRACEPTION
     Route: 065
     Dates: start: 20160203, end: 20160203

REACTIONS (5)
  - Abdominal pain upper [Unknown]
  - Abasia [Unknown]
  - Blood urine present [Unknown]
  - Decreased appetite [Unknown]
  - Vomiting [Unknown]
